FAERS Safety Report 20696813 (Version 1)
Quarter: 2022Q2

REPORT INFORMATION
  Report Type: Spontaneous
  Country: US (occurrence: None)
  Receive Date: 20220408
  Receipt Date: 20220408
  Transmission Date: 20220720
  Serious: Yes (Hospitalization)
  Sender: FDA-Public Use
  Company Number: None

PATIENT
  Sex: Female
  Weight: 65.32 kg

DRUGS (10)
  1. CAPECITABINE [Suspect]
     Active Substance: CAPECITABINE
     Indication: Colon cancer
     Dosage: 150MG BID FOR 14 DAYS ORAL?
     Route: 048
     Dates: start: 202202, end: 20220321
  2. CAPECITABINE [Suspect]
     Active Substance: CAPECITABINE
     Indication: Colon cancer
     Dosage: 1500MG BID FOR 14 DAYS ORAL?
     Route: 048
     Dates: start: 202202, end: 20220321
  3. MULTIVITAMIN [Concomitant]
  4. LEVOTHYROXINE SODIUM [Concomitant]
  5. TRAMADOL [Concomitant]
     Active Substance: TRAMADOL
  6. FERROUS GLUCONATE [Concomitant]
     Active Substance: FERROUS GLUCONATE
  7. VALSARTAN [Concomitant]
     Active Substance: VALSARTAN
  8. SERTRALINE [Concomitant]
     Active Substance: SERTRALINE HYDROCHLORIDE
  9. TRADJENTA [Concomitant]
     Active Substance: LINAGLIPTIN
  10. JARDIANCE [Concomitant]
     Active Substance: EMPAGLIFLOZIN

REACTIONS (3)
  - Dehydration [None]
  - Decreased appetite [None]
  - Fluid intake reduced [None]
